FAERS Safety Report 5346493-7 (Version None)
Quarter: 2007Q2

REPORT INFORMATION
  Report Type: 
  Country: None (occurrence: None)
  Receive Date: 20070605
  Receipt Date: 20070525
  Transmission Date: 20071010
  Serious: Yes (Hospitalization)
  Sender: FDA-Public Use
  Company Number: US-AMGEN-US206935

PATIENT
  Sex: Female
  Weight: 71.7 kg

DRUGS (8)
  1. NEULASTA [Suspect]
     Indication: CHEMOTHERAPY
     Route: 058
     Dates: start: 20070115, end: 20070115
  2. CYTOXAN [Concomitant]
     Route: 065
     Dates: start: 20070110
  3. EPIRUBICIN [Concomitant]
     Route: 065
     Dates: start: 20070110
  4. FLUOROURACIL [Concomitant]
     Route: 065
     Dates: start: 20070110
  5. DECADRON [Concomitant]
     Route: 065
     Dates: start: 20070110
  6. PROCRIT [Concomitant]
     Route: 065
     Dates: start: 20070110
  7. IRON [Concomitant]
     Route: 065
  8. LEUKINE [Concomitant]
     Route: 065
     Dates: start: 20070208, end: 20070208

REACTIONS (5)
  - ANAPHYLACTIC REACTION [None]
  - FAECES DISCOLOURED [None]
  - HOT FLUSH [None]
  - LOSS OF CONSCIOUSNESS [None]
  - OCULAR HYPERAEMIA [None]
